FAERS Safety Report 7957908-X (Version None)
Quarter: 2011Q4

REPORT INFORMATION
  Report Type: 
  Country: None (occurrence: None)
  Receive Date: 20111205
  Receipt Date: 20111129
  Transmission Date: 20120403
  Serious: Yes (Death, Hospitalization)
  Sender: FDA-Public Use
  Company Number: JP-ROXANE LABORATORIES, INC.-2011-RO-01709RO

PATIENT
  Age: 36 Year
  Sex: Female

DRUGS (9)
  1. CYCLOPHOSPHAMIDE [Suspect]
     Indication: RHABDOMYOSARCOMA
  2. VINCRISTINE [Suspect]
     Indication: UTERINE LEIOMYOSARCOMA
  3. TAXOL [Suspect]
     Indication: UTERINE LEIOMYOSARCOMA
  4. CARBOPLATIN [Suspect]
     Indication: UTERINE LEIOMYOSARCOMA
  5. CYCLOPHOSPHAMIDE [Suspect]
     Indication: UTERINE LEIOMYOSARCOMA
  6. DACTINOMYCIN [Suspect]
     Indication: UTERINE LEIOMYOSARCOMA
  7. VINCRISTINE [Suspect]
     Indication: RHABDOMYOSARCOMA
  8. FUROSEMIDE [Suspect]
     Indication: TUMOUR LYSIS SYNDROME
  9. DACTINOMYCIN [Suspect]
     Indication: RHABDOMYOSARCOMA

REACTIONS (2)
  - TUMOUR LYSIS SYNDROME [None]
  - LEIOMYOSARCOMA RECURRENT [None]
